FAERS Safety Report 6067641-X (Version None)
Quarter: 2009Q1

REPORT INFORMATION
  Report Type: 
  Country: None (occurrence: None)
  Receive Date: 20090205
  Receipt Date: 20090123
  Transmission Date: 20090719
  Serious: Yes (Hospitalization)
  Sender: FDA-Public Use
  Company Number: DE-GENENTECH-269504

PATIENT
  Sex: Female

DRUGS (1)
  1. LUCENTIS [Suspect]
     Indication: MACULAR DEGENERATION
     Dosage: UNK
     Route: 031
     Dates: end: 20081113

REACTIONS (2)
  - CARDIAC FAILURE [None]
  - PULMONARY OEDEMA [None]
